FAERS Safety Report 8909373 (Version 1)
Quarter: 2012Q4

REPORT INFORMATION
  Report Type: Spontaneous
  Country: GB (occurrence: None)
  Receive Date: 20121107
  Receipt Date: 20121107
  Transmission Date: 20130627
  Serious: Yes (Disabling)
  Sender: FDA-Public Use
  Company Number: AUR-APL-2012-04669

PATIENT
  Age: 33 Year
  Sex: Male

DRUGS (8)
  1. LAMOTRIGINE  (LAMOTRIGINE) [Suspect]
     Indication: DRUG USE FOR UNKNOWN INDICATION
     Dosage: (100 mg,2 in 1 d)
     Dates: start: 20120606
  2. LAMOTRIGINE  (LAMOTRIGINE) [Suspect]
     Indication: DRUG USE FOR UNKNOWN INDICATION
  3. CHAMPIX [Suspect]
     Indication: SMOKING CESSATION THERAPY
     Dates: start: 20120914, end: 20121015
  4. EPILIM [Suspect]
     Indication: DRUG USE FOR UNKNOWN INDICATION
     Dosage: (500 mg,2 in 1 d)
     Dates: start: 20120430
  5. EPILIM [Suspect]
     Indication: DRUG USE FOR UNKNOWN INDICATION
  6. CODEINE PHOSPHATE (CODEINE PHOSPHATE) [Concomitant]
  7. MIDAZOLAM (MIDAZOLAM) [Concomitant]
  8. ZOPICLONE (ZOPICLONE) [Concomitant]

REACTIONS (4)
  - Epilepsy [None]
  - Multiple injuries [None]
  - Grand mal convulsion [None]
  - Anxiety [None]
